FAERS Safety Report 21460782 (Version 1)
Quarter: 2022Q4

REPORT INFORMATION
  Report Type: Spontaneous
  Country: US (occurrence: US)
  Receive Date: 20221015
  Receipt Date: 20221015
  Transmission Date: 20230113
  Serious: No
  Sender: FDA-Public Use
  Company Number: US-UNITED THERAPEUTICS-UNT-2022-018866

PATIENT
  Sex: Female

DRUGS (4)
  1. REMODULIN [Suspect]
     Active Substance: TREPROSTINIL
     Indication: Pulmonary arterial hypertension
     Dosage: UNK, CONTINUING
     Route: 058
     Dates: start: 20220719, end: 2022
  2. REMODULIN [Suspect]
     Active Substance: TREPROSTINIL
     Dosage: 0.01484 ?G/KG, CONTINUING (AT RATE OF 25MCQ/HOUR)
     Route: 058
     Dates: start: 2022
  3. UPTRAVI [Concomitant]
     Active Substance: SELEXIPAG
     Indication: Product used for unknown indication
     Route: 065
  4. ADCIRCA [Concomitant]
     Active Substance: TADALAFIL
     Indication: Product used for unknown indication
     Dosage: UNK
     Route: 065

REACTIONS (15)
  - Headache [Not Recovered/Not Resolved]
  - Infusion site pain [Not Recovered/Not Resolved]
  - Pain in extremity [Recovered/Resolved]
  - Infusion site erythema [Recovering/Resolving]
  - Infusion site swelling [Recovering/Resolving]
  - Loss of personal independence in daily activities [Unknown]
  - Fatigue [Unknown]
  - Blood pressure increased [Unknown]
  - Pain [Not Recovered/Not Resolved]
  - Dyspepsia [Not Recovered/Not Resolved]
  - Infusion site infection [Unknown]
  - Infusion site inflammation [Unknown]
  - Peripheral swelling [Unknown]
  - Intentional medical device removal by patient [Unknown]
  - Device failure [Unknown]

NARRATIVE: CASE EVENT DATE: 20220101
